FAERS Safety Report 7951916-0 (Version None)
Quarter: 2011Q4

REPORT INFORMATION
  Report Type: 
  Country: None (occurrence: None)
  Receive Date: 20111201
  Receipt Date: 20111125
  Transmission Date: 20120403
  Serious: Yes (Other)
  Sender: FDA-Public Use
  Company Number: EC-B.I. PHARMACEUTICALS,INC./RIDGEFIELD-2011-RA-00354RA

PATIENT
  Age: 70 Year
  Sex: Male

DRUGS (3)
  1. DIURETICS [Concomitant]
  2. AMLODIPINA [Concomitant]
     Indication: HYPERTENSION
  3. DABIGATRAN ETEXILATE [Suspect]
     Indication: EMBOLIC STROKE
     Dosage: 220 MG
     Route: 048
     Dates: start: 20111101, end: 20111122

REACTIONS (1)
  - RENAL FAILURE ACUTE [None]
